FAERS Safety Report 5626288-7 (Version None)
Quarter: 2008Q1

REPORT INFORMATION
  Report Type: 
  Country: None (occurrence: None)
  Receive Date: 20080214
  Receipt Date: 20080204
  Transmission Date: 20080703
  Serious: Yes (Hospitalization, Other)
  Sender: FDA-Public Use
  Company Number: US-ELI_LILLY_AND_COMPANY-US200801006703

PATIENT
  Age: 62 Year
  Sex: Female
  Weight: 91.61 kg

DRUGS (2)
  1. GEMZAR [Suspect]
     Indication: OVARIAN CANCER RECURRENT
     Dosage: 1000 MG/M2, OTHER
     Dates: start: 20071101, end: 20080121
  2. CARBOPLATIN [Concomitant]
     Indication: OVARIAN CANCER RECURRENT
     Dosage: 4 D/F, OTHER

REACTIONS (2)
  - MALIGNANT NEOPLASM PROGRESSION [None]
  - SUPERIOR VENA CAVAL OCCLUSION [None]
